FAERS Safety Report 7789286-3 (Version None)
Quarter: 2011Q3

REPORT INFORMATION
  Report Type: 
  Country: None (occurrence: None)
  Receive Date: 20110930
  Receipt Date: 20110923
  Transmission Date: 20111222
  Serious: Yes (Death, Hospitalization, Disabling)
  Sender: FDA-Public Use
  Company Number: US-GLAXOSMITHKLINE-A0844999A

PATIENT
  Age: 68 Year
  Sex: Male

DRUGS (1)
  1. AVANDIA [Suspect]
     Indication: DIABETES MELLITUS
     Dosage: 4MG TWICE PER DAY
     Route: 048

REACTIONS (6)
  - AMNESIA [None]
  - DEATH [None]
  - OXYGEN SUPPLEMENTATION [None]
  - MYOCARDIAL INFARCTION [None]
  - ILL-DEFINED DISORDER [None]
  - DISORIENTATION [None]
